FAERS Safety Report 4639097-2 (Version None)
Quarter: 2005Q2

REPORT INFORMATION
  Report Type: 
  Country: None (occurrence: None)
  Receive Date: 20050418
  Receipt Date: 20050407
  Transmission Date: 20051028
  Serious: Yes (Hospitalization)
  Sender: FDA-Public Use
  Company Number: 213134

PATIENT
  Age: 53 Year
  Sex: Male

DRUGS (6)
  1. MABTHERA (RITUXIMAB) CONC FOR SOLUTION FOR INFUSION [Suspect]
     Indication: B-CELL LYMPHOMA
     Dosage: 750 MG, QD, INTRAVENOUS
     Route: 042
     Dates: start: 20050105
  2. BLEOMYCIN SULFATE [Suspect]
     Indication: B-CELL LYMPHOMA
     Dosage: 10 MG, QD, INTRAVENOUS
     Route: 042
     Dates: start: 20050105, end: 20050204
  3. CYCLOPHOSPHAMIDE [Suspect]
     Indication: B-CELL LYMPHOMA
     Dosage: 2.4 G, QD, INTRAVENOUS
     Route: 042
     Dates: start: 20050105, end: 20050204
  4. ELDISINE [Suspect]
     Indication: B-CELL LYMPHOMA
     Dosage: 4 MG, QD, INTRAVENOUS
     Route: 042
     Dates: start: 20050105
  5. ADRIAMYCIN PFS [Suspect]
     Indication: B-CELL LYMPHOMA
     Dosage: 150 MG, QD, INTRAVENOUS
     Route: 042
     Dates: start: 20050105
  6. METHOTREXATE [Suspect]
     Indication: B-CELL LYMPHOMA
     Dosage: 15 MG, INTRATHECAL
     Route: 037
     Dates: start: 20050105

REACTIONS (1)
  - PNEUMOCYSTIS JIROVECI PNEUMONIA [None]
